FAERS Safety Report 14545371 (Version 1)
Quarter: 2018Q1

REPORT INFORMATION
  Report Type: Spontaneous
  Country: SG (occurrence: SG)
  Receive Date: 20180219
  Receipt Date: 20180219
  Transmission Date: 20180509
  Serious: Yes (Other)
  Sender: FDA-Public Use
  Company Number: SG-BAXTER-2018BAX005192

PATIENT
  Sex: Female

DRUGS (1)
  1. ARTISS FROZEN [Suspect]
     Active Substance: FIBRINOGEN HUMAN\THROMBIN HUMAN
     Indication: FACE LIFT
     Route: 065

REACTIONS (2)
  - Necrosis [Unknown]
  - Haematoma [Unknown]
